FAERS Safety Report 23160421 (Version 4)
Quarter: 2025Q4

REPORT INFORMATION
  Report Type: Spontaneous
  Country: JP (occurrence: JP)
  Receive Date: 20231108
  Receipt Date: 20251031
  Transmission Date: 20260118
  Serious: Yes (Hospitalization)
  Sender: ABBVIE
  Company Number: JP-MOCHP-A20234466

PATIENT
  Age: 78 Year
  Sex: Female

DRUGS (2)
  1. LEXAPRO [Suspect]
     Active Substance: ESCITALOPRAM OXALATE
     Indication: Insomnia
     Dosage: STRENGTH: 10 MILLIGRAM
     Route: 048
  2. LEXAPRO [Suspect]
     Active Substance: ESCITALOPRAM OXALATE
     Indication: Insomnia
     Route: 048
     Dates: start: 2015

REACTIONS (7)
  - Drug withdrawal syndrome [Not Recovered/Not Resolved]
  - Blood pressure fluctuation [Unknown]
  - Blood pressure increased [Unknown]
  - Suicide attempt [Unknown]
  - Irritability [Unknown]
  - Product use in unapproved indication [Unknown]
  - Anxiety [Unknown]
